FAERS Safety Report 4440991-6 (Version None)
Quarter: 2004Q3

REPORT INFORMATION
  Report Type: 
  Country: None (occurrence: None)
  Receive Date: 20040728
  Receipt Date: 20040416
  Transmission Date: 20050211
  Serious: No
  Sender: FDA-Public Use
  Company Number: USA040465151

PATIENT
  Age: 33 Year
  Sex: Female
  Weight: 59 kg

DRUGS (1)
  1. STRATTERA [Suspect]
     Indication: ATTENTION DEFICIT/HYPERACTIVITY DISORDER
     Dosage: 40 MG IN THE MORNING
     Dates: start: 20040413

REACTIONS (6)
  - FEELING ABNORMAL [None]
  - FORMICATION [None]
  - INSOMNIA [None]
  - PARAESTHESIA [None]
  - PILOERECTION [None]
  - PRURITUS [None]
